FAERS Safety Report 4713848-0 (Version None)
Quarter: 2005Q3

REPORT INFORMATION
  Report Type: 
  Country: None (occurrence: None)
  Receive Date: 20050712
  Receipt Date: 20050628
  Transmission Date: 20060218
  Serious: Yes (Hospitalization)
  Sender: FDA-Public Use
  Company Number: US_0507119711

PATIENT
  Age: 77 Year
  Sex: Female

DRUGS (6)
  1. GEMZAR [Suspect]
     Indication: PANCREATIC CARCINOMA
     Dates: start: 20031215
  2. VICODIN [Concomitant]
  3. POLYETHYLENE GLYCOL [Concomitant]
  4. LORATADINE [Concomitant]
  5. CITRUCEL (METHYLCELLULOSE) [Concomitant]
  6. PANCRELIPASE [Concomitant]

REACTIONS (12)
  - ANAEMIA OF CHRONIC DISEASE [None]
  - CELLULITIS [None]
  - DEHYDRATION [None]
  - EMPHYSEMA [None]
  - LUNG NEOPLASM [None]
  - MALNUTRITION [None]
  - PNEUMONIA [None]
  - PNEUMONITIS [None]
  - PREALBUMIN DECREASED [None]
  - SCAR [None]
  - THROMBOSIS [None]
  - UPPER RESPIRATORY TRACT INFECTION [None]
